FAERS Safety Report 6744138-2 (Version None)
Quarter: 2010Q2

REPORT INFORMATION
  Report Type: 
  Country: None (occurrence: None)
  Receive Date: 20100527
  Receipt Date: 20100526
  Transmission Date: 20101027
  Serious: Yes (Life-Threatening, Hospitalization)
  Sender: FDA-Public Use
  Company Number: B0657044A

PATIENT
  Age: 42 Year
  Sex: Male
  Weight: 75 kg

DRUGS (6)
  1. ATRIANCE [Suspect]
     Dosage: 1500MGM2 PER DAY
     Route: 065
     Dates: start: 20100518, end: 20100519
  2. CLADRIBINE [Concomitant]
     Indication: CHEMOTHERAPY
     Route: 042
     Dates: start: 20100301
  3. IFOSFAMIDE [Concomitant]
     Indication: CHEMOTHERAPY
     Route: 042
     Dates: start: 20100401
  4. METHOTREXATE [Concomitant]
     Indication: DRUG USE FOR UNKNOWN INDICATION
     Route: 065
  5. CYTARABINE [Concomitant]
     Indication: DRUG USE FOR UNKNOWN INDICATION
     Route: 065
  6. DEXAMETHASONE [Concomitant]
     Indication: DRUG USE FOR UNKNOWN INDICATION
     Route: 065

REACTIONS (13)
  - CONSTIPATION [None]
  - DIPLEGIA [None]
  - EXTENSOR PLANTAR RESPONSE [None]
  - GAIT DISTURBANCE [None]
  - HYPOREFLEXIA [None]
  - INCONTINENCE [None]
  - MUSCULAR WEAKNESS [None]
  - MYELOPATHY [None]
  - NEUROTOXICITY [None]
  - PARAESTHESIA [None]
  - PARAPLEGIA [None]
  - PERIPHERAL MOTOR NEUROPATHY [None]
  - PERIPHERAL SENSORY NEUROPATHY [None]
